FAERS Safety Report 4584696-X (Version None)
Quarter: 2005Q1

REPORT INFORMATION
  Report Type: 
  Country: None (occurrence: None)
  Receive Date: 20050211
  Receipt Date: 20050131
  Transmission Date: 20050727
  Serious: Yes (Other)
  Sender: FDA-Public Use
  Company Number: 2005023449

PATIENT
  Age: 84 Year
  Sex: Male
  Weight: 72.5755 kg

DRUGS (4)
  1. LIPITOR [Suspect]
     Indication: BLOOD CHOLESTEROL INCREASED
     Dosage: ORAL
     Route: 048
  2. CLOPIDOGREL BISULFATE [Concomitant]
  3. SIMVASTATIN [Concomitant]
  4. ATENOLOL [Concomitant]

REACTIONS (2)
  - HIP FRACTURE [None]
  - MYALGIA [None]
